FAERS Safety Report 4927077-9 (Version None)
Quarter: 2006Q1

REPORT INFORMATION
  Report Type: 
  Country: None (occurrence: None)
  Receive Date: 20060228
  Receipt Date: 20051019
  Transmission Date: 20060701
  Serious: No
  Sender: FDA-Public Use
  Company Number: US-GLAXOSMITHKLINE-A0578759A

PATIENT
  Age: 61 Year
  Sex: Female

DRUGS (6)
  1. LAMICTAL [Suspect]
     Indication: BIPOLAR DISORDER
     Dosage: 200MG PER DAY
     Route: 048
  2. WELLBUTRIN XL [Concomitant]
  3. DEXTROSTAT [Concomitant]
  4. KLONOPIN [Concomitant]
  5. PROTONIX [Concomitant]
  6. REMERON [Concomitant]

REACTIONS (4)
  - CONSTIPATION [None]
  - DYSGEUSIA [None]
  - NAUSEA [None]
  - VOMITING [None]
